FAERS Safety Report 5675829-2 (Version None)
Quarter: 2008Q1

REPORT INFORMATION
  Report Type: 
  Country: None (occurrence: None)
  Receive Date: 20080318
  Receipt Date: 20080307
  Transmission Date: 20080703
  Serious: Yes (Hospitalization)
  Sender: FDA-Public Use
  Company Number: S08-USA-00915-01

PATIENT
  Age: 72 Year
  Sex: Male

DRUGS (13)
  1. NAMENDA [Suspect]
     Indication: DEMENTIA ALZHEIMER'S TYPE
     Dosage: 5 MG QD PO
     Route: 048
     Dates: start: 20080204, end: 20080210
  2. NAMENDA [Suspect]
     Indication: DEMENTIA ALZHEIMER'S TYPE
     Dosage: 5 MG BID PO
     Route: 048
     Dates: start: 20080211, end: 20080217
  3. ASPIRIN [Concomitant]
  4. PLAVIX [Concomitant]
  5. LISINOPRIL [Concomitant]
  6. ARICEPT [Concomitant]
  7. LOPRESSOR [Concomitant]
  8. FLOMAX [Concomitant]
  9. LIPITOR [Concomitant]
  10. AQUAPHOR [Concomitant]
  11. NITROSTAT [Concomitant]
  12. NAMENDA [Suspect]
     Indication: DEMENTIA ALZHEIMER'S TYPE
     Dosage: 15 MG QD PO
     Route: 048
     Dates: start: 20080218, end: 20080224
  13. NAMENDA [Suspect]
     Indication: DEMENTIA ALZHEIMER'S TYPE
     Dosage: 10 MB BID PO
     Route: 048
     Dates: start: 20080225

REACTIONS (3)
  - ATRIAL FIBRILLATION [None]
  - ORTHOSTATIC HYPOTENSION [None]
  - SICK SINUS SYNDROME [None]
